FAERS Safety Report 24422126 (Version 5)
Quarter: 2025Q3

REPORT INFORMATION
  Report Type: Spontaneous
  Country: IL (occurrence: IL)
  Receive Date: 20241010
  Receipt Date: 20250809
  Transmission Date: 20251021
  Serious: Yes (Other)
  Sender: ALEXION PHARMACEUTICALS
  Company Number: IL-AstraZeneca-CH-00720476A

PATIENT
  Age: 25 Year
  Sex: Female
  Weight: 55 kg

DRUGS (6)
  1. ULTOMIRIS [Suspect]
     Active Substance: RAVULIZUMAB-CWVZ
     Indication: Atypical haemolytic uraemic syndrome
     Dosage: 3000 MILLIGRAM, Q8W
     Dates: start: 2021
  2. PREDNISONE [Concomitant]
     Active Substance: PREDNISONE
     Route: 065
  3. MYFORTIC [Concomitant]
     Active Substance: MYCOPHENOLATE SODIUM
     Route: 065
  4. LOSEC [Concomitant]
     Active Substance: OMEPRAZOLE
     Route: 065
  5. TACROLIMUS [Concomitant]
     Active Substance: TACROLIMUS
     Route: 065
  6. Tritace comb [Concomitant]
     Route: 065

REACTIONS (1)
  - Thyroid cancer [Unknown]
